FAERS Safety Report 4878148-7 (Version None)
Quarter: 2005Q4

REPORT INFORMATION
  Report Type: 
  Country: None (occurrence: None)
  Receive Date: 20051212
  Receipt Date: 20050824
  Transmission Date: 20060501
  Serious: No
  Sender: FDA-Public Use
  Company Number: M03-341-130

PATIENT
  Age: 75 Year
  Sex: Male
  Weight: 76 kg

DRUGS (4)
  1. VELCADE [Suspect]
     Indication: MULTIPLE MYELOMA
     Dosage: SEE IMAGE
     Route: 042
     Dates: start: 20030922, end: 20031002
  2. VELCADE [Suspect]
     Indication: MULTIPLE MYELOMA
     Dosage: SEE IMAGE
     Route: 042
     Dates: start: 20040302
  3. ZOMETA [Concomitant]
  4. DEXAMETHASONE TAB [Concomitant]

REACTIONS (2)
  - ARTHRALGIA [None]
  - NEUROPATHY PERIPHERAL [None]
